FAERS Safety Report 6247207-9 (Version None)
Quarter: 2009Q2

REPORT INFORMATION
  Report Type: 
  Country: None (occurrence: None)
  Receive Date: 20090624
  Receipt Date: 20090624
  Transmission Date: 20091009
  Serious: Yes (Hospitalization)
  Sender: FDA-Public Use
  Company Number: None

PATIENT
  Age: 56 Year
  Sex: Female
  Weight: 53.5244 kg

DRUGS (1)
  1. MACROBID [Suspect]
     Indication: URINARY TRACT INFECTION
     Dosage: 1 CAPSULE TWICE DAILY PO
     Route: 048
     Dates: start: 20090520, end: 20090526

REACTIONS (14)
  - ARTHRALGIA [None]
  - ASTHENIA [None]
  - BLOOD URINE PRESENT [None]
  - CHILLS [None]
  - COCCIDIOIDOMYCOSIS [None]
  - FATIGUE [None]
  - GAIT DISTURBANCE [None]
  - IMPAIRED WORK ABILITY [None]
  - OEDEMA PERIPHERAL [None]
  - PAIN IN EXTREMITY [None]
  - PYREXIA [None]
  - RASH GENERALISED [None]
  - URTICARIA [None]
  - VIRAL INFECTION [None]
